FAERS Safety Report 4920021-X (Version None)
Quarter: 2006Q1

REPORT INFORMATION
  Report Type: 
  Country: None (occurrence: None)
  Receive Date: 20060223
  Receipt Date: 20060118
  Transmission Date: 20060701
  Serious: Yes (Hospitalization)
  Sender: FDA-Public Use
  Company Number: 2006AP00352

PATIENT
  Age: 21237 Day
  Sex: Female

DRUGS (7)
  1. IRESSA [Suspect]
     Indication: NON-SMALL CELL LUNG CANCER
     Route: 048
     Dates: start: 20051222, end: 20060116
  2. IRESSA [Concomitant]
     Route: 048
     Dates: start: 20020716, end: 20040801
  3. ASPIRIN [Concomitant]
     Indication: THROMBOSIS PROPHYLAXIS
     Route: 048
     Dates: start: 20051227, end: 20060116
  4. AMLODIN [Concomitant]
     Indication: HYPERTENSION
     Route: 048
  5. UNSPECIFIED DRUG [Concomitant]
     Indication: NON-SMALL CELL LUNG CANCER
     Route: 048
     Dates: start: 20051001
  6. EBIOS [Concomitant]
     Indication: NON-SMALL CELL LUNG CANCER
     Route: 048
     Dates: start: 20051001
  7. CARBOPLATIN [Concomitant]

REACTIONS (1)
  - PLATELET COUNT DECREASED [None]
